FAERS Safety Report 6761469-0 (Version None)
Quarter: 2010Q2

REPORT INFORMATION
  Report Type: 
  Country: None (occurrence: None)
  Receive Date: 20100607
  Receipt Date: 20080319
  Transmission Date: 20101027
  Serious: Yes (Hospitalization)
  Sender: FDA-Public Use
  Company Number: LEO-2010-00464(0)

PATIENT
  Sex: Female
  Weight: 3.31 kg

DRUGS (7)
  1. INNOHEP [Suspect]
     Indication: MATERNAL DRUGS AFFECTING FOETUS
     Dosage: TRANSPLACENTAL
     Route: 064
     Dates: start: 20040116, end: 20040304
  2. FOLIC ACID [Concomitant]
  3. DEXAMETHASONE [Concomitant]
  4. MEPERIDINE HCL [Concomitant]
  5. CO-DYDRAMOL (PARACETAMOL, DIHYDROCODEINE BITARTRATE) [Concomitant]
  6. TEMAZEPAM (TEMAZAPEM) [Concomitant]
  7. CYCLIZINE (CYCLIZINE) [Concomitant]

REACTIONS (3)
  - APGAR SCORE LOW [None]
  - MATERNAL DRUGS AFFECTING FOETUS [None]
  - PREMATURE BABY [None]
